FAERS Safety Report 24530616 (Version 1)
Quarter: 2024Q4

REPORT INFORMATION
  Report Type: Spontaneous
  Country: US (occurrence: US)
  Receive Date: 20241021
  Receipt Date: 20241021
  Transmission Date: 20250115
  Serious: No
  Sender: PERRIGO
  Company Number: US-PERRIGO-24US002312

PATIENT
  Age: 49 Year
  Sex: Female
  Weight: 72.562 kg

DRUGS (2)
  1. NICOTINE POLACRILEX [Suspect]
     Active Substance: NICOTINE
     Indication: Electronic cigarette user
     Dosage: 4 MG, SINGLE
     Route: 002
     Dates: start: 20240226, end: 20240226
  2. LIPITOR [Concomitant]
     Active Substance: ATORVASTATIN CALCIUM
     Indication: Blood cholesterol increased
     Dosage: UNK, QD
     Route: 065
     Dates: start: 2017

REACTIONS (2)
  - Abdominal pain [Recovered/Resolved]
  - Wrong technique in product usage process [Recovered/Resolved]

NARRATIVE: CASE EVENT DATE: 20240226
